FAERS Safety Report 4510455-X (Version None)
Quarter: 2004Q4

REPORT INFORMATION
  Report Type: 
  Country: None (occurrence: None)
  Receive Date: 20041124
  Receipt Date: 20041022
  Transmission Date: 20050328
  Serious: Yes (Hospitalization)
  Sender: FDA-Public Use
  Company Number: JP-GLAXOSMITHKLINE-B0349430A

PATIENT
  Age: 69 Year
  Sex: Male
  Weight: 57 kg

DRUGS (10)
  1. VALTREX [Suspect]
     Indication: HERPES ZOSTER
     Dosage: 1000MG PER DAY
     Route: 048
     Dates: start: 20041019, end: 20041019
  2. ZOVIRAX [Suspect]
     Indication: HERPES ZOSTER
     Route: 048
     Dates: start: 20041020, end: 20041021
  3. LASIX [Concomitant]
     Dosage: 80MG PER DAY
     Route: 048
     Dates: end: 20041020
  4. PERYCIT [Concomitant]
     Dosage: 750MG PER DAY
     Route: 048
     Dates: end: 20041020
  5. METHYLCOBAL [Concomitant]
     Indication: NEUROPATHY PERIPHERAL
     Dosage: 1500MCG PER DAY
     Route: 048
     Dates: end: 20041020
  6. THYRADIN S [Concomitant]
     Indication: HYPOTHYROIDISM
     Dosage: 50MCG PER DAY
     Route: 048
     Dates: end: 20041020
  7. CALTAN [Concomitant]
     Indication: BLOOD PHOSPHORUS INCREASED
     Dosage: 3G PER DAY
     Route: 048
     Dates: end: 20041020
  8. FAMOTIDINE [Concomitant]
     Indication: GASTRITIS
     Dosage: 10MG PER DAY
     Route: 048
     Dates: end: 20041020
  9. RENAGEL [Concomitant]
     Indication: BLOOD PHOSPHORUS INCREASED
     Dosage: 22.5G PER DAY
     Route: 048
     Dates: end: 20041020
  10. ADONA (AC-17) [Concomitant]
     Dosage: 90MG PER DAY
     Route: 048
     Dates: end: 20041020

REACTIONS (5)
  - CONFUSIONAL STATE [None]
  - DYSLALIA [None]
  - ENCEPHALOPATHY [None]
  - GAIT DISTURBANCE [None]
  - HALLUCINATION, VISUAL [None]
